FAERS Safety Report 11805985 (Version 2)
Quarter: 2016Q2

REPORT INFORMATION
  Report Type: Report from Study
  Country: US (occurrence: US)
  Receive Date: 20151207
  Receipt Date: 20160418
  Transmission Date: 20160815
  Serious: Yes (Other)
  Sender: FDA-Public Use
  Company Number: US-ROCHE-ITM201505IM017041

PATIENT
  Sex: Male
  Weight: 72.64 kg

DRUGS (4)
  1. ESBRIET [Suspect]
     Active Substance: PIRFENIDONE
     Route: 048
     Dates: start: 20150505, end: 20151101
  2. ESBRIET [Suspect]
     Active Substance: PIRFENIDONE
     Indication: IDIOPATHIC PULMONARY FIBROSIS
     Route: 048
     Dates: start: 20150401
  3. ESBRIET [Suspect]
     Active Substance: PIRFENIDONE
     Route: 048
  4. ESBRIET [Suspect]
     Active Substance: PIRFENIDONE
     Route: 048
     Dates: start: 20151225

REACTIONS (15)
  - Pruritus [Unknown]
  - Dyspnoea [Unknown]
  - Nasopharyngitis [Unknown]
  - Constipation [Unknown]
  - Asthenia [Unknown]
  - Decreased appetite [Recovering/Resolving]
  - Rash [Unknown]
  - Skin exfoliation [Unknown]
  - Weight decreased [Unknown]
  - Skin reaction [Unknown]
  - Fatigue [Unknown]
  - Pyrexia [Unknown]
  - Dermatitis allergic [Unknown]
  - Sunburn [Recovered/Resolved]
  - Cough [Unknown]
